FAERS Safety Report 19628748 (Version 1)
Quarter: 2021Q3

REPORT INFORMATION
  Report Type: Report from Study
  Country: JP (occurrence: JP)
  Receive Date: 20210729
  Receipt Date: 20210729
  Transmission Date: 20211014
  Serious: Yes (Other)
  Sender: FDA-Public Use
  Company Number: JP-MYLANLABS-2021M1045460

PATIENT

DRUGS (4)
  1. MELPHALAN. [Suspect]
     Active Substance: MELPHALAN
     Indication: PLASMA CELL MYELOMA
     Dosage: 9 MILLIGRAM/SQ. METER, ON DAYS 1?4 (SAME DOSE IN BOTH CYCLE 1 AND CYCLE 2?9)
     Route: 048
  2. BORTEZOMIB. [Suspect]
     Active Substance: BORTEZOMIB
     Indication: PLASMA CELL MYELOMA
     Dosage: 1.3 MILLIGRAM/SQ. METER, CYCLE 1 (SIX?WEEK CYCLE)
     Route: 058
  3. PREDNISOLONE. [Suspect]
     Active Substance: PREDNISOLONE
     Indication: PLASMA CELL MYELOMA
     Dosage: 60 MILLIGRAM/SQ. METER, ON DAYS 1?4 (SAME DOSE IN BOTH CYCLE 1 AND CYCLE 2?9)
     Route: 048
  4. BORTEZOMIB. [Suspect]
     Active Substance: BORTEZOMIB
     Dosage: 1.3 MILLIGRAM/SQ. METER, CYCLE 2?9 (FIVE?WEEK CYCLE)
     Route: 058

REACTIONS (1)
  - Acute kidney injury [Unknown]
